FAERS Safety Report 4773894-8 (Version None)
Quarter: 2005Q3

REPORT INFORMATION
  Report Type: 
  Country: None (occurrence: None)
  Receive Date: 20050919
  Receipt Date: 20050907
  Transmission Date: 20060218
  Serious: Yes (Hospitalization, Disabling, Other)
  Sender: FDA-Public Use
  Company Number: USA-2005-0021117

PATIENT
  Age: 76 Year
  Sex: Female

DRUGS (2)
  1. OXYCONTIN [Suspect]
     Indication: PAIN
     Dosage: 10 MG, Q12H, ORAL
     Route: 048
  2. PREDNISONE [Concomitant]

REACTIONS (6)
  - ACIDOSIS [None]
  - ADRENAL INSUFFICIENCY [None]
  - BLOOD CREATININE DECREASED [None]
  - CREATININE RENAL CLEARANCE DECREASED [None]
  - SOMNOLENCE [None]
  - URINARY TRACT INFECTION [None]
